FAERS Safety Report 8737970 (Version 2)
Quarter: 2013Q4

REPORT INFORMATION
  Report Type: Spontaneous
  Country: US (occurrence: US)
  Receive Date: 20120823
  Receipt Date: 20131101
  Transmission Date: 20140711
  Serious: No
  Sender: FDA-Public Use
  Company Number: US-009507513-1208USA002456

PATIENT
  Sex: Female

DRUGS (1)
  1. NUVARING [Suspect]
     Route: 067

REACTIONS (4)
  - Coital bleeding [Unknown]
  - Weight increased [Unknown]
  - Metrorrhagia [Unknown]
  - Cervicitis [Unknown]
